FAERS Safety Report 5018156-9 (Version None)
Quarter: 2006Q2

REPORT INFORMATION
  Report Type: 
  Country: None (occurrence: None)
  Receive Date: 20060605
  Receipt Date: 20060526
  Transmission Date: 20061013
  Serious: Yes (Hospitalization)
  Sender: FDA-Public Use
  Company Number: US-JNJFOC-20060506555

PATIENT
  Sex: Female
  Weight: 61.24 kg

DRUGS (11)
  1. DURAGESIC-100 [Suspect]
     Indication: PAIN
     Route: 062
  2. ULTRAM [Concomitant]
     Indication: PAIN
     Route: 048
  3. NEURONTIN [Concomitant]
     Indication: PAIN
     Route: 048
  4. ELAVIL [Concomitant]
     Indication: SLEEP DISORDER
     Route: 048
  5. FIORINAL W/CODEINE [Concomitant]
     Route: 048
  6. FIORINAL W/CODEINE [Concomitant]
     Route: 048
  7. FIORINAL W/CODEINE [Concomitant]
     Route: 048
  8. FIORINAL W/CODEINE [Concomitant]
     Route: 048
  9. FIORINAL W/CODEINE [Concomitant]
     Indication: HEADACHE
     Route: 048
  10. ZANAFLEX [Concomitant]
     Indication: PAIN
     Route: 048
  11. TRAZODONE HCL [Concomitant]
     Indication: DEPRESSION
     Route: 048

REACTIONS (1)
  - LOCALISED INFECTION [None]
